FAERS Safety Report 13039204 (Version 4)
Quarter: 2017Q4

REPORT INFORMATION
  Report Type: Spontaneous
  Country: JP (occurrence: JP)
  Receive Date: 20161219
  Receipt Date: 20171115
  Transmission Date: 20180320
  Serious: Yes (Hospitalization, Other)
  Sender: FDA-Public Use
  Company Number: PHJP2016JP036539

PATIENT
  Age: 67 Year
  Sex: Male

DRUGS (1)
  1. TEGRETOL [Suspect]
     Active Substance: CARBAMAZEPINE
     Indication: TRIGEMINAL NEURALGIA
     Dosage: 100 MG, UNK
     Route: 048

REACTIONS (11)
  - Meningoencephalitis herpetic [Unknown]
  - Rash [Unknown]
  - Altered state of consciousness [Recovering/Resolving]
  - Drug reaction with eosinophilia and systemic symptoms [Unknown]
  - Hepatic function abnormal [Unknown]
  - Erythema [Unknown]
  - Lymphadenopathy [Unknown]
  - Human herpesvirus 6 infection [Unknown]
  - Pyrexia [Unknown]
  - Lymphocyte morphology abnormal [Unknown]
  - Limbic encephalitis [Unknown]
